FAERS Safety Report 9299111 (Version 1)
Quarter: 2013Q2

REPORT INFORMATION
  Report Type: Spontaneous
  Country: NL (occurrence: NL)
  Receive Date: 20130520
  Receipt Date: 20130520
  Transmission Date: 20140414
  Serious: Yes (Other)
  Sender: FDA-Public Use
  Company Number: NL-TEVA-405318ISR

PATIENT
  Age: 39 Year
  Sex: Male

DRUGS (1)
  1. PROPRANOLOL TABLET 40MG [Suspect]
     Indication: EYE DISORDER
     Dosage: 1 TIME A DAY 2 PIECES
     Route: 048
     Dates: start: 201110

REACTIONS (2)
  - Neovascularisation [Recovered/Resolved with Sequelae]
  - Vitreous haemorrhage [Recovered/Resolved with Sequelae]
